FAERS Safety Report 16786011 (Version 1)
Quarter: 2019Q3

REPORT INFORMATION
  Report Type: Spontaneous
  Country: UA (occurrence: UA)
  Receive Date: 20190909
  Receipt Date: 20190909
  Transmission Date: 20191005
  Serious: Yes (Other)
  Sender: FDA-Public Use
  Company Number: UA-PFIZER INC-2019388022

PATIENT
  Age: 50 Year
  Sex: Female

DRUGS (3)
  1. DALACIN [Suspect]
     Active Substance: CLINDAMYCIN
     Dosage: 300 MG, 3X/DAY
  2. CEFTRIAXONE. [Concomitant]
     Active Substance: CEFTRIAXONE
     Dosage: UNK
     Route: 042
  3. DALACIN [Suspect]
     Active Substance: CLINDAMYCIN
     Indication: INTESTINAL OPERATION
     Dosage: 600 MG, 3X/DAY

REACTIONS (1)
  - Gastrointestinal candidiasis [Unknown]
